FAERS Safety Report 14585031 (Version 2)
Quarter: 2018Q2

REPORT INFORMATION
  Report Type: Spontaneous
  Country: CA (occurrence: CA)
  Receive Date: 20180301
  Receipt Date: 20180522
  Transmission Date: 20180711
  Serious: Yes (Other)
  Sender: FDA-Public Use
  Company Number: CA-CONCORDIA PHARMACEUTICALS INC.-GSH201802-000706

PATIENT
  Sex: Female

DRUGS (4)
  1. ARAVA [Suspect]
     Active Substance: LEFLUNOMIDE
     Indication: RHEUMATOID ARTHRITIS
     Route: 048
  2. METHOTREXATE. [Concomitant]
     Active Substance: METHOTREXATE
     Indication: AMNESTIC DISORDER
  3. SULFASALAZINE. [Concomitant]
     Active Substance: SULFASALAZINE
     Indication: AMNESTIC DISORDER
  4. PLAQUENIL [Suspect]
     Active Substance: HYDROXYCHLOROQUINE SULFATE
     Indication: PRODUCT USED FOR UNKNOWN INDICATION
     Route: 065

REACTIONS (7)
  - Rheumatoid arthritis [Unknown]
  - Alopecia [Unknown]
  - Pain [Unknown]
  - Nasopharyngitis [Unknown]
  - Eye infection [Recovered/Resolved]
  - Ear infection [Recovered/Resolved]
  - Furuncle [Unknown]
